FAERS Safety Report 19180827 (Version 1)
Quarter: 2021Q2

REPORT INFORMATION
  Report Type: Spontaneous
  Country: FR (occurrence: FR)
  Receive Date: 20210426
  Receipt Date: 20210426
  Transmission Date: 20210717
  Serious: Yes (Hospitalization)
  Sender: FDA-Public Use
  Company Number: FR-PFIZER INC-2021409518

PATIENT
  Age: 73 Year
  Sex: Male

DRUGS (4)
  1. PREVISCAN [FLUINDIONE] [Suspect]
     Active Substance: FLUINDIONE
     Indication: PULMONARY EMBOLISM
     Dosage: 10 MG, 1X/DAY IN THE EVENING
     Route: 048
     Dates: start: 2011, end: 20180101
  2. PIPERACILLIN/TAZOBACTAM [Suspect]
     Active Substance: PIPERACILLIN SODIUM\TAZOBACTAM SODIUM
     Indication: LUNG OPACITY
     Dosage: 1 DF, 1X/DAY
     Route: 042
     Dates: start: 20171229, end: 20180108
  3. CIPROFLOXACINE [CIPROFLOXACIN] [Suspect]
     Active Substance: CIPROFLOXACIN
     Indication: LUNG OPACITY
     Dosage: 200 MG, 1X/DAY (200 MG/100 ML)
     Route: 042
     Dates: start: 20171229, end: 20180108
  4. CALCIPARINE [Suspect]
     Active Substance: HEPARIN CALCIUM
     Indication: PULMONARY EMBOLISM
     Dosage: 5000 IU, 1X/DAY
     Route: 058
     Dates: start: 20180103, end: 20180109

REACTIONS (5)
  - International normalised ratio increased [Recovered/Resolved]
  - Melaena [Recovered/Resolved]
  - Blood loss anaemia [Recovered/Resolved]
  - Accidental overdose [Recovered/Resolved]
  - Off label use [Unknown]

NARRATIVE: CASE EVENT DATE: 20180103
